FAERS Safety Report 5921097-3 (Version None)
Quarter: 2008Q4

REPORT INFORMATION
  Report Type: 
  Country: None (occurrence: None)
  Receive Date: 20081016
  Receipt Date: 20081007
  Transmission Date: 20090506
  Serious: Yes (Hospitalization)
  Sender: FDA-Public Use
  Company Number: FR-PFIZER INC-2008084913

PATIENT
  Sex: Male
  Weight: 78 kg

DRUGS (8)
  1. DEPO-MEDROL [Suspect]
     Route: 037
     Dates: start: 20080903, end: 20080903
  2. DEPO-MEDROL [Suspect]
     Dates: start: 20080902, end: 20080915
  3. SOLU-MEDROL [Suspect]
     Dates: start: 20080902, end: 20080915
  4. ARACYTINE [Suspect]
     Route: 037
     Dates: start: 20080903, end: 20080903
  5. METHOTREXATE [Suspect]
     Route: 037
     Dates: start: 20080819, end: 20080903
  6. ALL OTHER THERAPEUTIC PRODUCTS [Suspect]
     Dates: start: 20080902, end: 20080904
  7. ENDOXAN [Suspect]
     Dates: start: 20080902, end: 20080902
  8. VINCRISTINE SULFATE [Concomitant]
     Dates: start: 20080902, end: 20080909

REACTIONS (1)
  - CEREBRAL THROMBOSIS [None]
